FAERS Safety Report 17930685 (Version 3)
Quarter: 2021Q2

REPORT INFORMATION
  Report Type: Spontaneous
  Country: US (occurrence: US)
  Receive Date: 20200623
  Receipt Date: 20210427
  Transmission Date: 20210717
  Serious: No
  Sender: FDA-Public Use
  Company Number: US-PFIZER INC-2020122720

PATIENT
  Age: 56 Year
  Sex: Female

DRUGS (4)
  1. GENOTROPIN [Suspect]
     Active Substance: SOMATROPIN
     Dosage: 0.2 MG, DAILY (ALTERNATE 0.2MG WITH 0.3MG DAILY)
     Dates: start: 20170127
  2. GENOTROPIN [Suspect]
     Active Substance: SOMATROPIN
     Dosage: 0.3 MG, DAILY (ALTERNATE 0.2MG WITH 0.3MG DAILY)
     Dates: start: 20170127
  3. GENOTROPIN [Suspect]
     Active Substance: SOMATROPIN
     Dosage: 0.4 MG
  4. GENOTROPIN [Suspect]
     Active Substance: SOMATROPIN
     Dosage: 0.2 MG

REACTIONS (5)
  - Muscular weakness [Unknown]
  - Weight increased [Unknown]
  - Peripheral swelling [Unknown]
  - Product prescribing error [Unknown]
  - Asthenia [Unknown]

NARRATIVE: CASE EVENT DATE: 20170127
